FAERS Safety Report 13789206 (Version 1)
Quarter: 2017Q3

REPORT INFORMATION
  Report Type: Spontaneous
  Country: SE (occurrence: SE)
  Receive Date: 20170725
  Receipt Date: 20170725
  Transmission Date: 20171127
  Serious: Yes (Hospitalization)
  Sender: FDA-Public Use
  Company Number: SE-ROCHE-1967367

PATIENT
  Age: 83 Year
  Sex: Female

DRUGS (2)
  1. FURIX [Concomitant]
     Active Substance: FUROSEMIDE
     Route: 065
  2. MABTHERA [Suspect]
     Active Substance: RITUXIMAB
     Indication: HAIRY CELL LEUKAEMIA
     Route: 042
     Dates: start: 20170613, end: 20170613

REACTIONS (4)
  - Blood pressure decreased [Recovered/Resolved]
  - Chills [Recovered/Resolved]
  - Sputum increased [Recovered/Resolved]
  - Vomiting [Recovered/Resolved]

NARRATIVE: CASE EVENT DATE: 20170613
